FAERS Safety Report 20769341 (Version 1)
Quarter: 2022Q2

REPORT INFORMATION
  Report Type: Spontaneous
  Country: US (occurrence: None)
  Receive Date: 20220429
  Receipt Date: 20220429
  Transmission Date: 20220721
  Serious: Yes (Hospitalization, Other)
  Sender: FDA-Public Use
  Company Number: US-MLMSERVICE-20220415-3503874-1

PATIENT
  Age: 59 Year
  Sex: Male

DRUGS (2)
  1. DEXAMETHASONE [Suspect]
     Active Substance: DEXAMETHASONE
     Indication: Back pain
     Dosage: ON THE RIGHT SIDE AND LEFT SIDE OF HIS BACK
     Route: 008
  2. BUPIVACAINE [Concomitant]
     Active Substance: BUPIVACAINE
     Indication: Back pain
     Dosage: ON THE RIGHT SIDE AND LEFT SIDE OF HIS BACK
     Route: 008

REACTIONS (1)
  - Hiccups [Recovered/Resolved]
